FAERS Safety Report 21967448 (Version 1)
Quarter: 2023Q1

REPORT INFORMATION
  Report Type: Spontaneous
  Country: JP (occurrence: JP)
  Receive Date: 20230208
  Receipt Date: 20230208
  Transmission Date: 20230417
  Serious: Yes (Hospitalization, Other)
  Sender: FDA-Public Use
  Company Number: JP-PFIZER INC-PV202300020772

PATIENT
  Age: 23 Year
  Sex: Female

DRUGS (7)
  1. METHYLPREDNISOLONE [Suspect]
     Active Substance: METHYLPREDNISOLONE
     Indication: Chronic active Epstein-Barr virus infection
     Dosage: 62.5 MG/M2, 2X/DAY
  2. CYTARABINE [Suspect]
     Active Substance: CYTARABINE
     Indication: Chronic active Epstein-Barr virus infection
     Dosage: 100 MG/M2, DAILY FOR FOR 7 DAYS
  3. CYTARABINE [Suspect]
     Active Substance: CYTARABINE
     Dosage: 1.5 H/M2 8 TIMES
  4. PREDNISOLONE [Suspect]
     Active Substance: PREDNISOLONE
     Indication: Chronic active Epstein-Barr virus infection
     Dosage: 30 MG/M2/DAY FOR 4 DAYS
  5. ETOPOSIDE [Suspect]
     Active Substance: ETOPOSIDE
     Indication: Chronic active Epstein-Barr virus infection
     Dosage: 150 MG/M2
  6. ASPARAGINASE [Suspect]
     Active Substance: ASPARAGINASE
     Indication: Chronic active Epstein-Barr virus infection
     Dosage: 6000U/M2/ DAY FOR 5 DAYS
  7. CYCLOSPORINE [Concomitant]
     Active Substance: CYCLOSPORINE
     Indication: Chronic active Epstein-Barr virus infection
     Dosage: UNK

REACTIONS (2)
  - Hypoxia [Unknown]
  - Off label use [Unknown]
